FAERS Safety Report 7535031-6 (Version None)
Quarter: 2011Q2

REPORT INFORMATION
  Report Type: 
  Country: None (occurrence: None)
  Receive Date: 20110609
  Receipt Date: 20110602
  Transmission Date: 20111010
  Serious: No
  Sender: FDA-Public Use
  Company Number: US-BIOGENIDEC-2011BI019200

PATIENT
  Sex: Female

DRUGS (1)
  1. TYSABRI [Suspect]
     Indication: PRODUCT USED FOR UNKNOWN INDICATION
     Route: 042
     Dates: start: 20110214

REACTIONS (5)
  - DYSPNOEA [None]
  - VERTIGO [None]
  - ANTIBODY TEST ABNORMAL [None]
  - MALAISE [None]
  - URTICARIA [None]
